FAERS Safety Report 9741568 (Version 2)
Quarter: 2015Q1

REPORT INFORMATION
  Report Type: Report from Study
  Country: US (occurrence: US)
  Receive Date: 20131210
  Receipt Date: 20150304
  Transmission Date: 20150721
  Serious: Yes (Death)
  Sender: FDA-Public Use
  Company Number: US-ROCHE-1317076

PATIENT
  Sex: Female

DRUGS (12)
  1. ABRAXANE [Concomitant]
     Active Substance: PACLITAXEL
     Dosage: VIA INFUSION PUMP
     Route: 041
  2. DEXAMETHASONE. [Concomitant]
     Active Substance: DEXAMETHASONE
     Dosage: GIVEN 30MINUTES PRIOR TO CHEMOTHERAPY
     Route: 048
  3. NORMAL SALINE [Concomitant]
     Active Substance: SODIUM CHLORIDE
     Dosage: AT A KEEP OPEN RATE
     Route: 041
  4. KYTRIL [Concomitant]
     Active Substance: GRANISETRON HYDROCHLORIDE
     Route: 048
  5. DEXAMETHASONE. [Concomitant]
     Active Substance: DEXAMETHASONE
     Route: 048
  6. HEPARIN [Concomitant]
     Active Substance: HEPARIN SODIUM
     Dosage: 500UNITS
     Route: 065
  7. SENOKOT [Concomitant]
     Active Substance: SENNOSIDES
  8. AVASTIN [Suspect]
     Active Substance: BEVACIZUMAB
     Indication: OVARIAN CANCER
     Dosage: 1000MG INTRAVENOUS (IVPB) IN 100ML NORMAL SALINE GIVEN VIA INFUSION PUMP (IMED)
     Route: 041
     Dates: start: 20101111
  9. NORMAL SALINE [Concomitant]
     Active Substance: SODIUM CHLORIDE
     Dosage: AT A KEEP OPEN RATE
     Route: 041
  10. NEUPOGEN [Concomitant]
     Active Substance: FILGRASTIM
     Route: 058
  11. ZOFRAN [Concomitant]
     Active Substance: ONDANSETRON HYDROCHLORIDE
     Dosage: GIVEN 30MINUTES PRIOR TO CHEMOTHERAPY
     Route: 048
  12. KYTRIL [Concomitant]
     Active Substance: GRANISETRON HYDROCHLORIDE
     Dosage: GIVEN 30 MINUTES PRIOR TO CHEMOTHERAPY.
     Route: 048

REACTIONS (5)
  - Back pain [Unknown]
  - Nausea [Unknown]
  - Vomiting [Unknown]
  - Death [Fatal]
  - Constipation [Recovered/Resolved]
